FAERS Safety Report 13695006 (Version 2)
Quarter: 2017Q4

REPORT INFORMATION
  Report Type: Report from Study
  Country: NL (occurrence: NL)
  Receive Date: 20170627
  Receipt Date: 20171106
  Transmission Date: 20180320
  Serious: Yes (Hospitalization)
  Sender: FDA-Public Use
  Company Number: PHHO2016NL008510

PATIENT
  Age: 66 Year
  Sex: Male
  Weight: 81 kg

DRUGS (5)
  1. ACETYLSALICYLIC ACID [Suspect]
     Active Substance: ASPIRIN
     Indication: CARDIOVASCULAR EVENT PROPHYLAXIS
     Dosage: 20 MG, BID
     Route: 048
     Dates: start: 20030123, end: 20160517
  2. ACETYLSALICYLIC ACID [Suspect]
     Active Substance: ASPIRIN
     Dosage: 80 MG, QD
     Route: 048
     Dates: start: 20160825
  3. DIPYRIDAMOLE. [Suspect]
     Active Substance: DIPYRIDAMOLE
     Indication: CARDIOVASCULAR EVENT PROPHYLAXIS
     Dosage: 200 MG, BID
     Route: 048
     Dates: start: 20030123, end: 20160517
  4. TICAGRELOR. [Suspect]
     Active Substance: TICAGRELOR
     Indication: CARDIOVASCULAR EVENT PROPHYLAXIS
     Dosage: 90 MG, BID
     Route: 048
     Dates: start: 20160825
  5. ACZ885 [Suspect]
     Active Substance: CANAKINUMAB
     Indication: CARDIOVASCULAR EVENT PROPHYLAXIS
     Dosage: 50 MG, QUARTERLY
     Route: 058
     Dates: start: 20120126

REACTIONS (2)
  - Epistaxis [Recovered/Resolved]
  - Presyncope [Recovered/Resolved]

NARRATIVE: CASE EVENT DATE: 20170525
